FAERS Safety Report 5616191-0 (Version None)
Quarter: 2008Q1

REPORT INFORMATION
  Report Type: 
  Country: None (occurrence: None)
  Receive Date: 20080206
  Receipt Date: 20080128
  Transmission Date: 20080703
  Serious: Yes (Hospitalization)
  Sender: FDA-Public Use
  Company Number: US-MERCK-0801USA05582

PATIENT
  Age: 77 Year
  Sex: Male

DRUGS (12)
  1. ZOLINZA [Suspect]
     Indication: LYMPHOMA
     Route: 048
     Dates: start: 20070101, end: 20080101
  2. ACTONEL [Concomitant]
     Route: 065
  3. LASIX [Concomitant]
     Route: 065
  4. COREG [Concomitant]
     Route: 065
  5. VESICARE [Concomitant]
     Route: 065
  6. [THERAPY UNSPECIFIED] [Concomitant]
     Route: 065
  7. POTASSIUM (UNSPECIFIED) [Concomitant]
     Route: 065
  8. RYTHMOL [Concomitant]
     Route: 065
  9. GASTROINTESTINAL PREPARATIONS (UNSPECIFIED) [Concomitant]
     Route: 065
  10. ASPIRIN [Concomitant]
     Route: 065
  11. VITAMIN E [Concomitant]
     Route: 065
  12. PLAVIX [Concomitant]
     Route: 065

REACTIONS (3)
  - CARDIAC DISORDER [None]
  - DRUG INEFFECTIVE [None]
  - LOSS OF CONSCIOUSNESS [None]
